FAERS Safety Report 7967719-7 (Version None)
Quarter: 2011Q4

REPORT INFORMATION
  Report Type: 
  Country: None (occurrence: None)
  Receive Date: 20111207
  Receipt Date: 20111124
  Transmission Date: 20120403
  Serious: Yes (Other)
  Sender: FDA-Public Use
  Company Number: 1000025920

PATIENT
  Age: 55 Year
  Sex: Male

DRUGS (1)
  1. MEMANTINE HYDROCHLORIDE [Suspect]
     Indication: DEMENTIA
     Dosage: 20 MG (20 MG, 1 IN 1 D), ORAL
     Route: 048
     Dates: start: 20101101

REACTIONS (3)
  - ATRIAL SEPTAL DEFECT [None]
  - CONDITION AGGRAVATED [None]
  - VENTRICULAR SEPTAL DEFECT [None]
